FAERS Safety Report 4889951-1 (Version None)
Quarter: 2006Q1

REPORT INFORMATION
  Report Type: 
  Country: None (occurrence: None)
  Receive Date: 20060124
  Receipt Date: 20051221
  Transmission Date: 20060701
  Serious: Yes (Other)
  Sender: FDA-Public Use
  Company Number: US-SANOFI-SYNTHELABO-F03200500193

PATIENT
  Sex: Male

DRUGS (6)
  1. OXALIPLATIN [Suspect]
     Indication: BRAIN NEOPLASM
     Route: 042
     Dates: start: 20051214, end: 20051214
  2. BENADRYL [Concomitant]
     Route: 042
  3. DECADRON [Concomitant]
     Route: 042
  4. TAGAMET [Concomitant]
     Route: 042
  5. ZOFRAN [Concomitant]
     Route: 042
  6. ZANTAC [Concomitant]
     Route: 042

REACTIONS (14)
  - ABDOMINAL PAIN [None]
  - CONVULSION [None]
  - DIZZINESS [None]
  - DRY MOUTH [None]
  - FEELING COLD [None]
  - HEADACHE [None]
  - INFLUENZA LIKE ILLNESS [None]
  - INFUSION RELATED REACTION [None]
  - LARYNGOSPASM [None]
  - NAUSEA [None]
  - PHOTOSENSITIVITY REACTION [None]
  - SPEECH DISORDER [None]
  - TESTICULAR PAIN [None]
  - TREMOR [None]
